FAERS Safety Report 17773212 (Version 1)
Quarter: 2020Q2

REPORT INFORMATION
  Report Type: Spontaneous
  Country: US (occurrence: US)
  Receive Date: 20200512
  Receipt Date: 20200512
  Transmission Date: 20200714
  Serious: No
  Sender: FDA-Public Use
  Company Number: US-TEVA-2020-US-1233849

PATIENT
  Sex: Female

DRUGS (2)
  1. SYNRIBO [Suspect]
     Active Substance: OMACETAXINE MEPESUCCINATE
     Indication: CHRONIC MYELOID LEUKAEMIA
     Dosage: 5 MILLIGRAM DAILY; SYNRIBO 2.5 MG BID
     Route: 065
  2. CALRITIN-D [Concomitant]

REACTIONS (3)
  - Contusion [Unknown]
  - Blister [Unknown]
  - Skin exfoliation [Unknown]
